FAERS Safety Report 21292504 (Version 1)
Quarter: 2022Q3

REPORT INFORMATION
  Report Type: Spontaneous
  Country: TH (occurrence: TH)
  Receive Date: 20220905
  Receipt Date: 20220905
  Transmission Date: 20221027
  Serious: Yes (Death)
  Sender: FDA-Public Use
  Company Number: TH-SUN PHARMACEUTICAL INDUSTRIES LTD-2022R1-353483

PATIENT
  Age: 77 Year
  Sex: Female

DRUGS (2)
  1. AMPHOTERICIN B [Suspect]
     Active Substance: AMPHOTERICIN B
     Indication: Fungal peritonitis
     Dosage: 5 MILLIGRAM/KILOGRAM, DAILY
     Route: 065
  2. ITRACONAZOLE [Suspect]
     Active Substance: ITRACONAZOLE
     Indication: Fungal peritonitis
     Dosage: 400 MILLIGRAM, DAILY
     Route: 048

REACTIONS (1)
  - Therapy partial responder [Fatal]
